FAERS Safety Report 4900743-7 (Version None)
Quarter: 2006Q1

REPORT INFORMATION
  Report Type: 
  Country: None (occurrence: None)
  Receive Date: 20060113
  Receipt Date: 20051012
  Transmission Date: 20060701
  Serious: No
  Sender: FDA-Public Use
  Company Number: 2005SP002602

PATIENT
  Age: 57 Year
  Sex: Female
  Weight: 65.7716 kg

DRUGS (3)
  1. LUNESTA [Suspect]
     Indication: INSOMNIA
     Dosage: 2 MG, 1X; ORAL
     Route: 048
     Dates: start: 20050826, end: 20050826
  2. LOTENSIN [Concomitant]
  3. BUPROPION HCL [Concomitant]

REACTIONS (4)
  - CHEST PAIN [None]
  - HALLUCINATION [None]
  - NIGHTMARE [None]
  - SWOLLEN TONGUE [None]
